FAERS Safety Report 6116589-0 (Version None)
Quarter: 2009Q1

REPORT INFORMATION
  Report Type: 
  Country: None (occurrence: None)
  Receive Date: 20090314
  Receipt Date: 20081216
  Transmission Date: 20090719
  Serious: No
  Sender: FDA-Public Use
  Company Number: US-ABBOTT-08P-163-0493368-00

PATIENT
  Sex: Female
  Weight: 59.02 kg

DRUGS (2)
  1. HUMIRA [Suspect]
     Indication: JUVENILE ARTHRITIS
     Dates: start: 20081101
  2. LOESTRIN 24 ETHINYL ESTRADIOL AND NORETHINDRONE [Concomitant]
     Indication: MENORRHAGIA

REACTIONS (1)
  - INJECTION SITE PAIN [None]
